FAERS Safety Report 15639971 (Version 2)
Quarter: 2018Q4

REPORT INFORMATION
  Report Type: Report from Study
  Country: MX (occurrence: MX)
  Receive Date: 20181120
  Receipt Date: 20181203
  Transmission Date: 20190205
  Serious: Yes (Other)
  Sender: FDA-Public Use
  Company Number: PHHY2018MX158471

PATIENT
  Sex: Female
  Weight: 60 kg

DRUGS (2)
  1. EXFORGE [Suspect]
     Active Substance: AMLODIPINE BESYLATE\VALSARTAN
     Indication: HYPERTENSION
     Dosage: 1 DF, QD (AMLODIPINE 5 MG, VALSARTAN 160 MG)
     Route: 048
  2. EXFORGE [Suspect]
     Active Substance: AMLODIPINE BESYLATE\VALSARTAN
     Dosage: 0.5 DF, QD (AMLODIPINE 5 MG, VALSARTAN 160 MG)
     Route: 065

REACTIONS (4)
  - Road traffic accident [Recovered/Resolved]
  - Wrong technique in product usage process [Not Recovered/Not Resolved]
  - Blood pressure increased [Recovered/Resolved]
  - Diabetes mellitus [Recovering/Resolving]
